FAERS Safety Report 8913060 (Version 1)
Quarter: 2012Q4

REPORT INFORMATION
  Report Type: Spontaneous
  Country: US (occurrence: None)
  Receive Date: 20121119
  Receipt Date: 20121119
  Transmission Date: 20130627
  Serious: No
  Sender: FDA-Public Use
  Company Number: None

PATIENT
  Age: 68 Year
  Sex: Male

DRUGS (10)
  1. BEVACIZUMAB [Suspect]
     Dosage: twice a year  Intraocular
     Route: 031
  2. PLAVIX [Concomitant]
  3. LISINOPRIL [Concomitant]
  4. ZOLOFT [Concomitant]
  5. ATIVAN [Concomitant]
  6. PROVENTIL [Concomitant]
  7. VITAMIN D [Concomitant]
  8. MINOCYCLINE [Concomitant]
  9. NEO OLY / DEXAMETH [Concomitant]
  10. RESTATIS [Concomitant]

REACTIONS (2)
  - Eye pain [None]
  - Hypoaesthesia eye [None]
